FAERS Safety Report 9265603 (Version 1)
Quarter: 2013Q2

REPORT INFORMATION
  Report Type: Report from Study
  Country: US (occurrence: US)
  Receive Date: 20130501
  Receipt Date: 20130501
  Transmission Date: 20140414
  Serious: Yes (Hospitalization)
  Sender: FDA-Public Use
  Company Number: US-ABBOTT-13P-163-1080499-00

PATIENT
  Sex: Male

DRUGS (1)
  1. HUMIRA [Suspect]
     Indication: CROHN^S DISEASE
     Dates: start: 2012

REACTIONS (11)
  - Apparent death [Recovered/Resolved]
  - Eructation [Not Recovered/Not Resolved]
  - Constipation [Unknown]
  - Organ failure [Unknown]
  - Intestinal obstruction [Unknown]
  - Infection [Not Recovered/Not Resolved]
  - Vomiting [Not Recovered/Not Resolved]
  - Gastric infection [Unknown]
  - Infection [Recovered/Resolved]
  - Hypophagia [Unknown]
  - Fatigue [Not Recovered/Not Resolved]
